FAERS Safety Report 4372678-2 (Version None)
Quarter: 2004Q2

REPORT INFORMATION
  Report Type: 
  Country: None (occurrence: None)
  Receive Date: 20040608
  Receipt Date: 20040527
  Transmission Date: 20050107
  Serious: Yes (Death, Life-Threatening, Hospitalization)
  Sender: FDA-Public Use
  Company Number: CZ-JNJFOC-20040501185

PATIENT
  Sex: Female

DRUGS (5)
  1. REMICADE [Suspect]
     Indication: RHEUMATOID ARTHRITIS
     Route: 042
  2. METHOTREXATE [Concomitant]
     Indication: RHEUMATOID ARTHRITIS
  3. PREDNISONE [Concomitant]
  4. NATRII RISEDRONAS [Concomitant]
  5. VITAMIN D [Concomitant]

REACTIONS (4)
  - BRONCHOPNEUMONIA [None]
  - DEMENTIA [None]
  - LUNG INFECTION [None]
  - MULTI-ORGAN FAILURE [None]
